FAERS Safety Report 9397648 (Version 1)
Quarter: 2013Q3

REPORT INFORMATION
  Report Type: Spontaneous
  Country: US (occurrence: US)
  Receive Date: 20130712
  Receipt Date: 20130712
  Transmission Date: 20140515
  Serious: Yes (Hospitalization)
  Sender: FDA-Public Use
  Company Number: US-SANOFI-AVENTIS-2013SA041106

PATIENT
  Age: 62 Year
  Sex: Female

DRUGS (2)
  1. AUBAGIO [Suspect]
     Indication: MULTIPLE SCLEROSIS
     Route: 048
     Dates: start: 20130327
  2. AUBAGIO [Suspect]
     Indication: MULTIPLE SCLEROSIS
     Route: 048

REACTIONS (5)
  - Gallbladder disorder [Unknown]
  - Oral herpes [Unknown]
  - White blood cell count decreased [Not Recovered/Not Resolved]
  - Nausea [Not Recovered/Not Resolved]
  - Drug dose omission [Unknown]
